FAERS Safety Report 13446840 (Version 3)
Quarter: 2017Q2

REPORT INFORMATION
  Report Type: Spontaneous
  Country: US (occurrence: US)
  Receive Date: 20170417
  Receipt Date: 20170502
  Transmission Date: 20170830
  Serious: No
  Sender: FDA-Public Use
  Company Number: US-PFIZER INC-2017154559

PATIENT
  Age: 69 Year
  Sex: Female

DRUGS (6)
  1. NITROSTAT [Suspect]
     Active Substance: NITROGLYCERIN
     Indication: MUSCLE SPASMS
     Dosage: UNK
  2. NITROGLYCERIN. [Concomitant]
     Active Substance: NITROGLYCERIN
     Dosage: UNK
     Dates: start: 2014
  3. NITROSTAT [Suspect]
     Active Substance: NITROGLYCERIN
     Indication: DYSPNOEA
     Dosage: UNK
  4. NITROSTAT [Suspect]
     Active Substance: NITROGLYCERIN
     Dosage: UNK
  5. NITROSTAT [Suspect]
     Active Substance: NITROGLYCERIN
     Dosage: UNK
  6. NITROSTAT [Suspect]
     Active Substance: NITROGLYCERIN
     Dosage: 4 MG, UNK
     Dates: start: 2014

REACTIONS (1)
  - Drug ineffective for unapproved indication [Not Recovered/Not Resolved]

NARRATIVE: CASE EVENT DATE: 2014
